FAERS Safety Report 6182443-1 (Version None)
Quarter: 2009Q2

REPORT INFORMATION
  Report Type: 
  Country: None (occurrence: None)
  Receive Date: 20090507
  Receipt Date: 20090429
  Transmission Date: 20091009
  Serious: Yes (Hospitalization)
  Sender: FDA-Public Use
  Company Number: GB-ROCHE-557897

PATIENT
  Sex: Male
  Weight: 120.5 kg

DRUGS (2)
  1. CAPECITABINE [Suspect]
     Indication: COLON CANCER
     Dosage: AS PER PROTOCOL, GIVEN AS 1250 MG/M2 TWICE DAILY FOR 14 DAYS,THERAPY INTERRUPTED.
     Route: 048
     Dates: start: 20080101
  2. CAPECITABINE [Suspect]
     Route: 048
     Dates: start: 20080424

REACTIONS (1)
  - INTESTINAL OBSTRUCTION [None]
